FAERS Safety Report 4513710-2 (Version None)
Quarter: 2004Q4

REPORT INFORMATION
  Report Type: 
  Country: None (occurrence: None)
  Receive Date: 20041130
  Receipt Date: 20040827
  Transmission Date: 20050328
  Serious: No
  Sender: FDA-Public Use
  Company Number: US-GLAXOSMITHKLINE-A0524202A

PATIENT
  Age: 70 Year
  Sex: Female

DRUGS (4)
  1. WELLBUTRIN XL [Suspect]
     Indication: DEPRESSION
     Dosage: 150MG PER DAY
     Route: 048
     Dates: start: 20040827
  2. AMBIEN [Concomitant]
  3. VIOXX [Concomitant]
  4. ZOCOR [Concomitant]

REACTIONS (1)
  - PALPITATIONS [None]
